FAERS Safety Report 26076381 (Version 1)
Quarter: 2025Q4

REPORT INFORMATION
  Report Type: Spontaneous
  Country: US (occurrence: US)
  Receive Date: 20251121
  Receipt Date: 20251121
  Transmission Date: 20260117
  Serious: No
  Sender: MYLAN
  Company Number: US-MYLANLABS-2025M1097620

PATIENT
  Sex: Female

DRUGS (1)
  1. ESTRADIOL [Suspect]
     Active Substance: ESTRADIOL
     Indication: Menopausal symptoms
     Dosage: UNK

REACTIONS (5)
  - Sleep disorder [Unknown]
  - Hot flush [Unknown]
  - Malabsorption from application site [Unknown]
  - Product substitution issue [Unknown]
  - Drug ineffective [Unknown]
